FAERS Safety Report 8337338-1 (Version None)
Quarter: 2012Q2

REPORT INFORMATION
  Report Type: 
  Country: None (occurrence: None)
  Receive Date: 20120504
  Receipt Date: 20120502
  Transmission Date: 20120825
  Serious: Yes (Other)
  Sender: FDA-Public Use
  Company Number: CA-ROCHE-1065354

PATIENT
  Age: 9 Year
  Sex: Male
  Weight: 43.13 kg

DRUGS (2)
  1. ACETAMINOPHEN [Concomitant]
     Route: 065
  2. TAMIFLU [Suspect]
     Indication: PRODUCT USED FOR UNKNOWN INDICATION
     Route: 048

REACTIONS (2)
  - GAIT DISTURBANCE [None]
  - PAIN IN EXTREMITY [None]
